FAERS Safety Report 7675778 (Version 2)
Quarter: 2012Q4

REPORT INFORMATION
  Report Type: 
  Country: US (occurrence: US)
  Receive Date: 20101119
  Receipt Date: 20121121
  Transmission Date: 20130627
  Serious: No
  Sender: FDA-Public Use
  Company Number: US-BRISTOL-MYERS SQUIBB COMPANY-15299449

PATIENT

DRUGS (1)
  1. AVALIDE [Suspect]

REACTIONS (1)
  - Medication error [Unknown]
